FAERS Safety Report 8324983-2 (Version None)
Quarter: 2012Q2

REPORT INFORMATION
  Report Type: 
  Country: None (occurrence: None)
  Receive Date: 20120501
  Receipt Date: 20100310
  Transmission Date: 20120825
  Serious: No
  Sender: FDA-Public Use
  Company Number: US-TEVA-2010001412

PATIENT
  Sex: Male
  Weight: 72.64 kg

DRUGS (3)
  1. NUVIGIL [Suspect]
     Indication: ATTENTION DEFICIT/HYPERACTIVITY DISORDER
     Route: 048
     Dates: start: 20090101, end: 20090101
  2. CAFERGOT [Concomitant]
     Dates: start: 19850101
  3. LAMICTAL [Concomitant]
     Dates: start: 20090101

REACTIONS (7)
  - INSOMNIA [None]
  - INTENTIONAL DRUG MISUSE [None]
  - PALPITATIONS [None]
  - DRUG INEFFECTIVE FOR UNAPPROVED INDICATION [None]
  - MANIA [None]
  - JUDGEMENT IMPAIRED [None]
  - DRUG EFFECT INCREASED [None]
